FAERS Safety Report 7011722-0 (Version None)
Quarter: 2010Q3

REPORT INFORMATION
  Report Type: 
  Country: None (occurrence: None)
  Receive Date: 20100923
  Receipt Date: 20090622
  Transmission Date: 20110219
  Serious: No
  Sender: FDA-Public Use
  Company Number: US-WYE-H09895309

PATIENT
  Sex: Female
  Weight: 71.73 kg

DRUGS (3)
  1. PREMARIN [Suspect]
     Indication: HOT FLUSH
     Route: 048
     Dates: start: 20010101
  2. FLUCONAZOLE [Interacting]
  3. METHYLPREDNISOLONE [Interacting]

REACTIONS (3)
  - CANDIDIASIS [None]
  - DRUG INTERACTION [None]
  - HOT FLUSH [None]
